FAERS Safety Report 6723515-X (Version None)
Quarter: 2010Q2

REPORT INFORMATION
  Report Type: 
  Country: None (occurrence: None)
  Receive Date: 20100513
  Receipt Date: 20100305
  Transmission Date: 20101027
  Serious: Yes (Hospitalization)
  Sender: FDA-Public Use
  Company Number: HK-ROCHE-672104

PATIENT
  Sex: Male
  Weight: 51 kg

DRUGS (11)
  1. METHOXY POLYETHYLENE GLYCOL-EPOETIN BETA [Suspect]
     Dosage: FORM: INFUSION.
     Route: 042
     Dates: start: 20081126
  2. ASPIRIN [Concomitant]
     Dates: start: 20080111
  3. LISINOPRIL [Concomitant]
     Dates: start: 20080111
  4. FRUSEMIDE [Concomitant]
     Dates: start: 20080930
  5. METOPROLOL [Concomitant]
     Dates: start: 20080930
  6. AMLODIPINE BESYLATE [Concomitant]
     Dates: start: 20090218
  7. FAMOTIDINE [Concomitant]
     Dates: start: 20090218
  8. GLYCERYL TRINITRATE [Concomitant]
     Dates: start: 20080901
  9. ALUMINUM HYDROXIDE GEL [Concomitant]
     Dates: start: 20090901
  10. ISOSORBIDE DINITRATE [Concomitant]
     Dates: start: 20090901
  11. DILTIAZEM [Concomitant]
     Dates: start: 20091110

REACTIONS (1)
  - CHEST PAIN [None]
